FAERS Safety Report 14942590 (Version 1)
Quarter: 2018Q2

REPORT INFORMATION
  Report Type: Spontaneous
  Country: US (occurrence: US)
  Receive Date: 20180528
  Receipt Date: 20180528
  Transmission Date: 20180711
  Serious: Yes (Hospitalization, Other)
  Sender: FDA-Public Use
  Company Number: US-APOTEX-2018AP014987

PATIENT
  Age: 22 Year
  Sex: Male

DRUGS (3)
  1. RISPERIDONE. [Suspect]
     Active Substance: RISPERIDONE
     Indication: PRODUCT USED FOR UNKNOWN INDICATION
     Dosage: UNK
     Route: 065
  2. ZOLPIDEM [Suspect]
     Active Substance: ZOLPIDEM\ZOLPIDEM TARTRATE
     Indication: MALIGNANT CATATONIA
     Dosage: 5 MG, DAILY
     Route: 065
  3. BENZTROPINE. [Concomitant]
     Active Substance: BENZTROPINE
     Indication: MUSCLE RIGIDITY
     Dosage: 0.5 MG, BID
     Route: 042

REACTIONS (3)
  - Confusional state [Unknown]
  - Abnormal behaviour [Unknown]
  - Neuroleptic malignant syndrome [Recovered/Resolved]
